FAERS Safety Report 15851370 (Version 1)
Quarter: 2019Q1

REPORT INFORMATION
  Report Type: Report from Study
  Country: CA (occurrence: CA)
  Receive Date: 20190122
  Receipt Date: 20190122
  Transmission Date: 20190417
  Serious: Yes (Other)
  Sender: FDA-Public Use
  Company Number: CA-ROCHE-2247353

PATIENT
  Sex: Female

DRUGS (30)
  1. METHYLPREDNISOLONE. [Concomitant]
     Active Substance: METHYLPREDNISOLONE
     Indication: PREMEDICATION
     Dosage: ONGOING
     Route: 042
     Dates: start: 20160617
  2. ACETAMINOPHEN. [Concomitant]
     Active Substance: ACETAMINOPHEN
  3. ATORVASTATIN [Concomitant]
     Active Substance: ATORVASTATIN
  4. LEVOFLOXACIN. [Concomitant]
     Active Substance: LEVOFLOXACIN
  5. SALBUTAMOL [Concomitant]
     Active Substance: ALBUTEROL
  6. RITUXAN [Suspect]
     Active Substance: RITUXIMAB
     Indication: IMMUNOGLOBULIN G4 RELATED DISEASE
     Route: 042
     Dates: start: 20160617
  7. DIPHENHYDRAMINE. [Concomitant]
     Active Substance: DIPHENHYDRAMINE
     Indication: PREMEDICATION
     Dosage: ONGOING
     Route: 048
     Dates: start: 20160617
  8. BISACODYL. [Concomitant]
     Active Substance: BISACODYL
  9. ADVAIR HFA [Concomitant]
     Active Substance: FLUTICASONE PROPIONATE\SALMETEROL XINAFOATE
  10. MIRTAZAPINE. [Concomitant]
     Active Substance: MIRTAZAPINE
  11. HYDROMORPHONE [Concomitant]
     Active Substance: HYDROMORPHONE
  12. DIMENHYDRINATE. [Concomitant]
     Active Substance: DIMENHYDRINATE
  13. MOMETASONE [Concomitant]
     Active Substance: MOMETASONE
  14. CARBOXYMETHYLCELLULOSE [Concomitant]
     Active Substance: CARBOXYMETHYLCELLULOSE
  15. MONTELUKAST [Concomitant]
     Active Substance: MONTELUKAST SODIUM
  16. METRONIDAZOLE. [Concomitant]
     Active Substance: METRONIDAZOLE
  17. LORAZEPAM. [Concomitant]
     Active Substance: LORAZEPAM
  18. ERYTHROMYCIN. [Concomitant]
     Active Substance: ERYTHROMYCIN
  19. FUROSEMIDE. [Concomitant]
     Active Substance: FUROSEMIDE
  20. COLACE [Concomitant]
     Active Substance: DOCUSATE SODIUM
  21. ACYCLOVIR. [Concomitant]
     Active Substance: ACYCLOVIR
  22. ESTRADIOL. [Concomitant]
     Active Substance: ESTRADIOL
  23. DALTEPARIN [Concomitant]
     Active Substance: DALTEPARIN
  24. ALTEPLASE. [Concomitant]
     Active Substance: ALTEPLASE
     Route: 065
  25. NALOXONE [Concomitant]
     Active Substance: NALOXONE
  26. PREDNISONE. [Concomitant]
     Active Substance: PREDNISONE
  27. VALSARTAN. [Concomitant]
     Active Substance: VALSARTAN
  28. LACTULOSE. [Concomitant]
     Active Substance: LACTULOSE
  29. ONDANSETRON [Concomitant]
     Active Substance: ONDANSETRON
  30. ACETAMINOPHEN. [Concomitant]
     Active Substance: ACETAMINOPHEN
     Indication: PREMEDICATION
     Route: 048
     Dates: start: 20160617

REACTIONS (1)
  - Immunodeficiency [Unknown]

NARRATIVE: CASE EVENT DATE: 2018
